FAERS Safety Report 6365813-8 (Version None)
Quarter: 2009Q3

REPORT INFORMATION
  Report Type: 
  Country: None (occurrence: None)
  Receive Date: 20090919
  Receipt Date: 20090825
  Transmission Date: 20100115
  Serious: No
  Sender: FDA-Public Use
  Company Number: US-ABBOTT-09P-163-0593530-00

PATIENT
  Sex: Female
  Weight: 86.26 kg

DRUGS (4)
  1. HUMIRA [Suspect]
     Indication: PSORIASIS
     Route: 058
     Dates: start: 20090101
  2. HUMIRA [Suspect]
     Indication: PSORIATIC ARTHROPATHY
  3. CLARITIN [Concomitant]
     Indication: SEASONAL ALLERGY
     Route: 048
  4. TRAMADOL HCL [Concomitant]
     Indication: ARTHRALGIA
     Route: 048

REACTIONS (3)
  - DRUG INEFFECTIVE [None]
  - POOR QUALITY DRUG ADMINISTERED [None]
  - PSORIASIS [None]
